FAERS Safety Report 21933330 (Version 1)
Quarter: 2023Q1

REPORT INFORMATION
  Report Type: Report from Study
  Country: US (occurrence: US)
  Receive Date: 20230131
  Receipt Date: 20230131
  Transmission Date: 20230418
  Serious: Yes (Other)
  Sender: FDA-Public Use
  Company Number: US-ABBVIE-4289610

PATIENT
  Age: 56 Year
  Sex: Male
  Weight: 89 kg

DRUGS (9)
  1. HUMIRA [Suspect]
     Active Substance: ADALIMUMAB
     Indication: Crohn^s disease
     Dosage: CF
     Route: 058
     Dates: start: 202201
  2. HUMIRA [Suspect]
     Active Substance: ADALIMUMAB
     Dosage: CF
     Route: 058
     Dates: start: 201907, end: 202112
  3. FOLIC ACID [Concomitant]
     Active Substance: FOLIC ACID
     Indication: Vitamin supplementation
     Dosage: 1 MILLIGRAM
  4. FISH OIL [Concomitant]
     Active Substance: FISH OIL
     Indication: Supplementation therapy
     Dosage: 12000 MICROGRAM
  5. LUTEIN [Concomitant]
     Active Substance: LUTEIN
     Indication: Ophthalmologic treatment
     Dosage: 40 MILLIGRAM
  6. ZEAXANTHIN [Concomitant]
     Active Substance: ZEAXANTHIN
     Indication: Ophthalmologic treatment
     Dosage: 40 MILLIGRAM
  7. VITAMIN B12 [Concomitant]
     Active Substance: CYANOCOBALAMIN
     Indication: Red blood cell count decreased
     Dosage: 1000 MICROGRAM
  8. AMITRIPTYLINE [Concomitant]
     Active Substance: AMITRIPTYLINE
     Indication: Chronic fatigue syndrome
     Dosage: 25 MILLIGRAM
  9. VITAMIN D3 [Concomitant]
     Active Substance: CHOLECALCIFEROL
     Indication: Red blood cell count decreased
     Dosage: 25 MICROGRAM

REACTIONS (2)
  - Small intestinal obstruction [Recovered/Resolved]
  - Enteritis [Recovered/Resolved]

NARRATIVE: CASE EVENT DATE: 20211201
